FAERS Safety Report 16215614 (Version 1)
Quarter: 2019Q2

REPORT INFORMATION
  Report Type: Spontaneous
  Country: CH (occurrence: CH)
  Receive Date: 20190419
  Receipt Date: 20190419
  Transmission Date: 20190711
  Serious: Yes (Other)
  Sender: FDA-Public Use
  Company Number: CH-TEVA-2019-CH-1039065

PATIENT
  Sex: Male
  Weight: 76.5 kg

DRUGS (10)
  1. LASIX [Suspect]
     Active Substance: FUROSEMIDE
     Indication: OEDEMA
     Route: 065
  2. ZYLORIC [Concomitant]
     Active Substance: ALLOPURINOL
     Dosage: 100 MILLIGRAM DAILY;
  3. SEEBRI [Concomitant]
     Active Substance: GLYCOPYRROLATE
  4. PRAVASTATIN MEPHA [Concomitant]
     Active Substance: PRAVASTATIN
     Dosage: 20 MILLIGRAM DAILY;
  5. COVERAM [Suspect]
     Active Substance: AMLODIPINE\PERINDOPRIL
     Route: 065
  6. PANTOZOL [Suspect]
     Active Substance: PANTOPRAZOLE SODIUM
     Dosage: 40 MILLIGRAM DAILY;
     Route: 065
  7. BILOL [Concomitant]
     Active Substance: BISOPROLOL
     Dosage: 2.5 MILLIGRAM DAILY;
  8. ASPIRIN CARDIO [Suspect]
     Active Substance: ASPIRIN
     Route: 065
     Dates: end: 20180822
  9. DUODART [Concomitant]
     Active Substance: DUTASTERIDE\TAMSULOSIN
  10. IRFEN [Suspect]
     Active Substance: IBUPROFEN
     Indication: BACK PAIN
     Route: 065

REACTIONS (1)
  - Renal failure [Recovered/Resolved]
